FAERS Safety Report 20369781 (Version 2)
Quarter: 2022Q1

REPORT INFORMATION
  Report Type: Spontaneous
  Country: CA (occurrence: CA)
  Receive Date: 20220124
  Receipt Date: 20220307
  Transmission Date: 20220423
  Serious: Yes (Other)
  Sender: FDA-Public Use
  Company Number: CA-LUPIN PHARMACEUTICALS INC.-2022-00668

PATIENT
  Sex: Male

DRUGS (15)
  1. BETAMETHASONE [Suspect]
     Active Substance: BETAMETHASONE
     Indication: Maternal therapy to enhance foetal lung maturity
     Dosage: 12 MG, BID (EVERY 12 HOURS)
     Route: 064
     Dates: start: 20170924, end: 20170925
  2. AMPICILLIN [Suspect]
     Active Substance: AMPICILLIN
     Indication: Drug therapy
     Dosage: 2 GRAM EVERY 6 HOURS
     Route: 064
     Dates: start: 20170924
  3. AMPICILLIN [Suspect]
     Active Substance: AMPICILLIN
     Indication: Evidence based treatment
     Dosage: 50 MILLIGRAM/KILOGRAM, BID
     Route: 065
  4. AMPICILLIN [Suspect]
     Active Substance: AMPICILLIN
     Dosage: 250 MILLIGRAM EVERY 6 HOURS
     Route: 064
     Dates: end: 20171001
  5. ERYTHROMYCIN [Suspect]
     Active Substance: ERYTHROMYCIN
     Indication: Drug therapy
     Dosage: 250 MILLIGRAM EVERY 6 HOURS
     Route: 064
     Dates: start: 20170924
  6. ERYTHROMYCIN [Suspect]
     Active Substance: ERYTHROMYCIN
     Dosage: 250 MILLIGRAM EVERY 6 HOURS
     Route: 064
     Dates: end: 20171001
  7. DEXAMETHASONE [Concomitant]
     Active Substance: DEXAMETHASONE
     Indication: Dependence on respirator
     Dosage: UNK (STOPPED DUE TO SUSPECTED INFECTION)
     Route: 065
  8. VANCOMYCIN [Concomitant]
     Active Substance: VANCOMYCIN
     Indication: Alpha haemolytic streptococcal infection
     Dosage: 10 MILLIGRAM/KILOGRAM, BID
     Route: 042
  9. CEFOTAXIME [Concomitant]
     Active Substance: CEFOTAXIME SODIUM
     Indication: Escherichia infection
     Dosage: 50 MILLIGRAM/KILOGRAM, TID
     Route: 042
  10. CLOXACILLIN [Concomitant]
     Active Substance: CLOXACILLIN
     Indication: Pneumonia bacterial
     Dosage: 50 MILLIGRAM/KILOGRAM, BID
     Route: 042
  11. CLOXACILLIN [Concomitant]
     Active Substance: CLOXACILLIN
     Dosage: 50 MILLIGRAM/KILOGRAM, TID
     Route: 042
  12. GENTAMICIN [Concomitant]
     Active Substance: GENTAMICIN
     Indication: Pneumonia bacterial
     Dosage: 2.5 MILLIGRAM/KILOGRAM ON DAY 0
     Route: 042
  13. GENTAMICIN [Concomitant]
     Active Substance: GENTAMICIN
     Dosage: 2.5 MILLIGRAM/KILOGRAM
     Route: 042
  14. GENTAMICIN [Concomitant]
     Active Substance: GENTAMICIN
     Dosage: 2.5 MILLIGRAM/KILOGRAM ON DAY 7
     Route: 042
  15. GENTAMICIN [Concomitant]
     Active Substance: GENTAMICIN
     Dosage: 3.3 MILLIGRAM/KILOGRAM ON DAY 30
     Route: 042

REACTIONS (6)
  - Sepsis [Recovered/Resolved]
  - Pneumonia [Recovered/Resolved]
  - Bacteraemia [Recovered/Resolved]
  - Low birth weight baby [Unknown]
  - Premature baby [Unknown]
  - Foetal exposure during pregnancy [Unknown]
